FAERS Safety Report 17509213 (Version 1)
Quarter: 2020Q1

REPORT INFORMATION
  Report Type: Spontaneous
  Country: US (occurrence: US)
  Receive Date: 20200306
  Receipt Date: 20200306
  Transmission Date: 20200409
  Serious: No
  Sender: FDA-Public Use
  Company Number: US-GLAXOSMITHKLINE-US2020AMR035072

PATIENT
  Sex: Female
  Weight: 54.42 kg

DRUGS (1)
  1. BREO ELLIPTA [Suspect]
     Active Substance: FLUTICASONE FUROATE\VILANTEROL TRIFENATATE
     Indication: PRODUCT USED FOR UNKNOWN INDICATION
     Dosage: 1 PUFF(S), 1D
     Route: 055
     Dates: start: 2018

REACTIONS (17)
  - Oropharyngeal pain [Unknown]
  - Arthritis [Unknown]
  - Skin disorder [Unknown]
  - Purulent discharge [Unknown]
  - Upper-airway cough syndrome [Unknown]
  - Rhinorrhoea [Unknown]
  - Arthralgia [Unknown]
  - Limb injury [Unknown]
  - Cough [Unknown]
  - Peripheral swelling [Unknown]
  - Wheezing [Unknown]
  - Dry skin [Unknown]
  - Mass [Unknown]
  - Sneezing [Unknown]
  - Eye pruritus [Unknown]
  - Fatigue [Unknown]
  - Nail disorder [Unknown]
